FAERS Safety Report 7920179-4 (Version None)
Quarter: 2011Q4

REPORT INFORMATION
  Report Type: 
  Country: None (occurrence: None)
  Receive Date: 20111117
  Receipt Date: 20111110
  Transmission Date: 20120403
  Serious: Yes (Death, Hospitalization, Other)
  Sender: FDA-Public Use
  Company Number: DE-JNJFOC-20111102935

PATIENT
  Age: 92 Year
  Sex: Male

DRUGS (13)
  1. FUROSEMIDE [Concomitant]
     Indication: PRODUCT USED FOR UNKNOWN INDICATION
     Route: 048
     Dates: end: 20041125
  2. BENALAPRIL [Concomitant]
     Indication: PRODUCT USED FOR UNKNOWN INDICATION
     Route: 048
     Dates: end: 20041125
  3. CARBIMAZOL [Concomitant]
     Indication: PRODUCT USED FOR UNKNOWN INDICATION
     Route: 048
     Dates: start: 20041019, end: 20041206
  4. TRAZODONE HCL [Suspect]
     Route: 048
     Dates: start: 20041029, end: 20041103
  5. LORAZEPAM [Suspect]
     Indication: PRODUCT USED FOR UNKNOWN INDICATION
     Route: 048
     Dates: start: 20041027, end: 20041206
  6. TRAZODONE HCL [Suspect]
     Indication: PRODUCT USED FOR UNKNOWN INDICATION
     Route: 048
     Dates: start: 20041104, end: 20041206
  7. LANITOP [Concomitant]
     Indication: PRODUCT USED FOR UNKNOWN INDICATION
     Route: 048
     Dates: end: 20041125
  8. HALDOL [Suspect]
     Indication: PRODUCT USED FOR UNKNOWN INDICATION
     Route: 048
     Dates: start: 20041021, end: 20041206
  9. TRAZODONE HCL [Suspect]
     Route: 048
     Dates: start: 20041028, end: 20041028
  10. VALORON [Concomitant]
     Indication: PRODUCT USED FOR UNKNOWN INDICATION
     Route: 048
     Dates: start: 20041201, end: 20041206
  11. CIPRO [Concomitant]
     Indication: PRODUCT USED FOR UNKNOWN INDICATION
     Route: 048
     Dates: start: 20041130, end: 20041206
  12. HALDOL [Suspect]
     Route: 048
     Dates: start: 20041019, end: 20041020
  13. ASPIRIN [Concomitant]
     Indication: PRODUCT USED FOR UNKNOWN INDICATION
     Route: 048
     Dates: end: 20041125

REACTIONS (5)
  - DEATH [None]
  - URINARY RETENTION [None]
  - HOSPITALISATION [None]
  - UROSEPSIS [None]
  - GENERAL PHYSICAL HEALTH DETERIORATION [None]
